FAERS Safety Report 7927649-3 (Version None)
Quarter: 2011Q4

REPORT INFORMATION
  Report Type: 
  Country: None (occurrence: None)
  Receive Date: 20111118
  Receipt Date: 20111107
  Transmission Date: 20120403
  Serious: Yes (Hospitalization, Other)
  Sender: FDA-Public Use
  Company Number: US-ROCHE-1014316

PATIENT

DRUGS (3)
  1. TIPIFARNIB [Suspect]
     Indication: NEOPLASM MALIGNANT
     Dosage: FOR EVERY 12 HOURS  FOR 3 WEEKS FOR EVERY 4 WEEKS
     Route: 048
  2. HERCEPTIN [Suspect]
     Dosage: OVER 30 MINUTES FOR EVERY WEEK ON DAY 1 FOR 4 WEEKS, EVERY 4 WEEK
     Route: 042
  3. HERCEPTIN [Suspect]
     Indication: NEOPLASM MALIGNANT
     Dosage: OVER 90 MINUTES ON DAY 1 OF CYCLE 1
     Route: 042
     Dates: start: 20000707

REACTIONS (4)
  - DIARRHOEA [None]
  - GASTRITIS [None]
  - NAUSEA [None]
  - VOMITING [None]
